FAERS Safety Report 19613995 (Version 3)
Quarter: 2021Q3

REPORT INFORMATION
  Report Type: Report from Study
  Country: US (occurrence: US)
  Receive Date: 20210727
  Receipt Date: 20210902
  Transmission Date: 20211014
  Serious: Yes (Hospitalization)
  Sender: FDA-Public Use
  Company Number: US-EISAI MEDICAL RESEARCH-EC-2021-096576

PATIENT
  Age: 55 Year
  Sex: Female

DRUGS (2)
  1. LENVIMA [Suspect]
     Active Substance: LENVATINIB
     Route: 048
     Dates: start: 20210730, end: 202108
  2. LENVIMA [Suspect]
     Active Substance: LENVATINIB
     Indication: PRODUCT USED FOR UNKNOWN INDICATION
     Route: 048
     Dates: start: 202105, end: 202107

REACTIONS (6)
  - Dysphonia [Not Recovered/Not Resolved]
  - Lip blister [Unknown]
  - Blister [Unknown]
  - Abdominal pain upper [Recovering/Resolving]
  - Tongue ulceration [Unknown]
  - Swelling [Unknown]

NARRATIVE: CASE EVENT DATE: 2021
